FAERS Safety Report 5218882-2 (Version None)
Quarter: 2007Q1

REPORT INFORMATION
  Report Type: 
  Country: None (occurrence: None)
  Receive Date: 20070123
  Receipt Date: 20070111
  Transmission Date: 20070707
  Serious: Yes (Death)
  Sender: FDA-Public Use
  Company Number: 2007SP000150

PATIENT
  Age: 60 Year
  Sex: Female
  Weight: 61.2356 kg

DRUGS (3)
  1. LUNESTA [Suspect]
     Indication: GENERALISED ANXIETY DISORDER
     Dosage: 3 MG;1X; ORAL
     Route: 048
     Dates: start: 20061211, end: 20061211
  2. CYMBALTA [Concomitant]
  3. ESTROGENIC SUBSTANCE [Concomitant]

REACTIONS (3)
  - COMPLETED SUICIDE [None]
  - GUN SHOT WOUND [None]
  - HEART INJURY [None]
